FAERS Safety Report 16453705 (Version 2)
Quarter: 2019Q2

REPORT INFORMATION
  Report Type: Spontaneous
  Country: US (occurrence: US)
  Receive Date: 20190619
  Receipt Date: 20190626
  Transmission Date: 20190711
  Serious: Yes (Hospitalization)
  Sender: FDA-Public Use
  Company Number: US-PFIZER INC-2019257811

PATIENT
  Age: 77 Year
  Sex: Female
  Weight: 51 kg

DRUGS (3)
  1. IBRANCE [Suspect]
     Active Substance: PALBOCICLIB
     Indication: BREAST CANCER METASTATIC
     Dosage: 100 MG, 1X/DAY
     Route: 048
     Dates: start: 20190605
  2. XGEVA [Concomitant]
     Active Substance: DENOSUMAB
     Indication: BONE DISORDER
     Dosage: 12 MG, CYCLIC(EVERY 4 WEEKS)
     Dates: start: 201904
  3. FASLODEX [Concomitant]
     Active Substance: FULVESTRANT
     Indication: PROPHYLAXIS
     Dosage: 500 MG, CYCLIC (EVERY 4 WEEKS)
     Route: 030
     Dates: start: 201904

REACTIONS (6)
  - Pleural effusion [Unknown]
  - Insomnia [Unknown]
  - Heart rate increased [Unknown]
  - Mass [Unknown]
  - Oxygen saturation decreased [Unknown]
  - Dyspnoea [Unknown]

NARRATIVE: CASE EVENT DATE: 201906
